FAERS Safety Report 12287979 (Version 2)
Quarter: 2019Q2

REPORT INFORMATION
  Report Type: Report from Study
  Country: US (occurrence: US)
  Receive Date: 20160420
  Receipt Date: 20190517
  Transmission Date: 20190711
  Serious: Yes (Hospitalization, Other)
  Sender: FDA-Public Use
  Company Number: US-ALEXION PHARMACEUTICALS INC.-A201602718

PATIENT
  Sex: Female

DRUGS (1)
  1. SOLIRIS [Suspect]
     Active Substance: ECULIZUMAB
     Indication: HAEMOLYTIC URAEMIC SYNDROME
     Dosage: UNK
     Route: 042

REACTIONS (6)
  - Sepsis [Unknown]
  - Pyrexia [Unknown]
  - Mastitis [Unknown]
  - Meningococcal infection [Unknown]
  - Breast mass [Unknown]
  - Haemolysis [Unknown]

NARRATIVE: CASE EVENT DATE: 20160410
